FAERS Safety Report 19645824 (Version 1)
Quarter: 2021Q3

REPORT INFORMATION
  Report Type: Spontaneous
  Country: US (occurrence: US)
  Receive Date: 20210802
  Receipt Date: 20210802
  Transmission Date: 20211014
  Serious: Yes (Death, Life-Threatening, Hospitalization)
  Sender: FDA-Public Use
  Company Number: None

PATIENT
  Age: 82 Year
  Sex: Male
  Weight: 87.75 kg

DRUGS (1)
  1. AMIODARONE [Suspect]
     Active Substance: AMIODARONE

REACTIONS (4)
  - Oxygen saturation decreased [None]
  - Toxicity to various agents [None]
  - Traumatic lung injury [None]
  - Dyspnoea [None]

NARRATIVE: CASE EVENT DATE: 20201030
